FAERS Safety Report 8276524-6 (Version None)
Quarter: 2012Q2

REPORT INFORMATION
  Report Type: 
  Country: None (occurrence: None)
  Receive Date: 20120412
  Receipt Date: 20120131
  Transmission Date: 20120825
  Serious: No
  Sender: FDA-Public Use
  Company Number: US-GLAXOSMITHKLINE-A0964031A

PATIENT
  Age: 72 Year
  Sex: Male

DRUGS (7)
  1. SIMVASTATIN [Concomitant]
  2. SYNTHROID [Concomitant]
  3. ASCORBIC ACID [Concomitant]
  4. MULTI-VITAMIN [Concomitant]
  5. CALCIUM CARBONATE [Concomitant]
  6. JALYN [Suspect]
     Indication: POLLAKIURIA
     Dosage: 1CAP AT NIGHT
     Route: 048
     Dates: start: 20111101
  7. ASPIRIN [Concomitant]

REACTIONS (3)
  - FLATULENCE [None]
  - CHANGE OF BOWEL HABIT [None]
  - FAECES HARD [None]
